FAERS Safety Report 17129477 (Version 1)
Quarter: 2019Q4

REPORT INFORMATION
  Report Type: Spontaneous
  Country: AU (occurrence: AU)
  Receive Date: 20191209
  Receipt Date: 20191209
  Transmission Date: 20200122
  Serious: Yes (Hospitalization)
  Sender: FDA-Public Use
  Company Number: AU-CELGENEUS-AUS-20191200038

PATIENT
  Age: 54 Year
  Sex: Male
  Weight: 58.2 kg

DRUGS (10)
  1. OLECLUMAB. [Concomitant]
     Active Substance: OLECLUMAB
     Route: 041
     Dates: start: 20191017, end: 20191017
  2. GEMCITABINE. [Concomitant]
     Active Substance: GEMCITABINE
     Dosage: 1700 MILLIGRAM
     Route: 041
     Dates: start: 20191024, end: 20191031
  3. GEMCITABINE. [Concomitant]
     Active Substance: GEMCITABINE
     Indication: DUCTAL ADENOCARCINOMA OF PANCREAS
     Dosage: 1700 MILLIGRAM
     Route: 041
     Dates: start: 20190725, end: 20190808
  4. GEMCITABINE. [Concomitant]
     Active Substance: GEMCITABINE
     Dosage: 1700 MILLIGRAM
     Route: 041
     Dates: start: 20190822, end: 20190905
  5. ABRAXANE [Suspect]
     Active Substance: PACLITAXEL
     Indication: DUCTAL ADENOCARCINOMA OF PANCREAS
     Dosage: 30 MILLIGRAM/SQ. METER
     Route: 041
     Dates: start: 20190725, end: 20190808
  6. ABRAXANE [Suspect]
     Active Substance: PACLITAXEL
     Dosage: 210 MILLIGRAM/SQ. METER
     Route: 041
     Dates: start: 20190919, end: 20191017
  7. GEMCITABINE. [Concomitant]
     Active Substance: GEMCITABINE
     Dosage: 1700 MILLIGRAM
     Route: 041
     Dates: start: 20190919, end: 20191017
  8. ABRAXANE [Suspect]
     Active Substance: PACLITAXEL
     Dosage: 210 MILLIGRAM/SQ. METER
     Route: 041
     Dates: start: 20190822, end: 20190905
  9. ABRAXANE [Suspect]
     Active Substance: PACLITAXEL
     Dosage: 210 MILLIGRAM/SQ. METER
     Route: 041
     Dates: start: 20191024, end: 20191031
  10. OLECLUMAB. [Concomitant]
     Active Substance: OLECLUMAB
     Indication: DUCTAL ADENOCARCINOMA OF PANCREAS
     Dosage: 3000 MILLIGRAM
     Route: 041
     Dates: start: 20190725, end: 20190919

REACTIONS (1)
  - General physical health deterioration [Not Recovered/Not Resolved]
